FAERS Safety Report 5136874-9 (Version None)
Quarter: 2006Q4

REPORT INFORMATION
  Report Type: 
  Country: None (occurrence: None)
  Receive Date: 20061023
  Receipt Date: 20061006
  Transmission Date: 20070319
  Serious: Yes (Hospitalization)
  Sender: FDA-Public Use
  Company Number: 231193

PATIENT
  Age: 62 Year
  Sex: Female
  Weight: 40 kg

DRUGS (3)
  1. AVASTIN [Suspect]
     Indication: COLORECTAL CANCER METASTATIC
     Dosage: 325 MG, Q3W, INTRAVENOUS
     Route: 042
     Dates: start: 20060802
  2. CAPECITABINE(CAPECITABINE) [Suspect]
     Indication: COLORECTAL CANCER METASTATIC
     Dosage: 1000 + 600 MG/M2, BID, ORAL - SEE IMAGE
     Route: 048
     Dates: start: 20060802, end: 20060927
  3. IRINOTECAN HCL [Suspect]
     Indication: COLORECTAL CANCER METASTATIC
     Dosage: 290 MG, UNK, INTRAVENOUS
     Route: 042
     Dates: start: 20060802

REACTIONS (4)
  - GENERAL PHYSICAL HEALTH DETERIORATION [None]
  - HEADACHE [None]
  - NAUSEA [None]
  - VOMITING [None]
